FAERS Safety Report 6687423-5 (Version None)
Quarter: 2010Q2

REPORT INFORMATION
  Report Type: 
  Country: None (occurrence: None)
  Receive Date: 20100415
  Receipt Date: 20100330
  Transmission Date: 20101027
  Serious: Yes (Hospitalization)
  Sender: FDA-Public Use
  Company Number: 230386J10BRA

PATIENT
  Age: 45 Year
  Sex: Female

DRUGS (6)
  1. REBIF [Suspect]
     Indication: RELAPSING-REMITTING MULTIPLE SCLEROSIS
     Dosage: 44 MCG, 3 IN 1 WK
     Dates: start: 20090921, end: 20100219
  2. ALDOL [HALDOL] (HALOPERIDOL) [Concomitant]
  3. CLONAZEPAM [Concomitant]
  4. AMITRIPTYLINE HYDROCHLORIDE [Concomitant]
  5. CITALOPRAM HYDROBROMIDE [Concomitant]
  6. CHLORPROMAZINE [Concomitant]

REACTIONS (6)
  - DIZZINESS [None]
  - EMOTIONAL DISTRESS [None]
  - HALLUCINATION [None]
  - LIVER DISORDER [None]
  - URINARY INCONTINENCE [None]
  - VOMITING [None]
